FAERS Safety Report 10098306 (Version 2)
Quarter: 2014Q2

REPORT INFORMATION
  Report Type: Spontaneous
  Country: US (occurrence: None)
  Receive Date: 20140421
  Receipt Date: 20140430
  Transmission Date: 20141212
  Serious: Yes (Hospitalization)
  Sender: FDA-Public Use
  Company Number: 2014US0183

PATIENT
  Sex: Female

DRUGS (1)
  1. KINERET [Suspect]
     Indication: PYREXIA
     Route: 058

REACTIONS (2)
  - Drug ineffective [None]
  - Treatment failure [None]
